FAERS Safety Report 9207674 (Version 3)
Quarter: 2013Q4

REPORT INFORMATION
  Report Type: Report from Study
  Country: US (occurrence: US)
  Receive Date: 20130403
  Receipt Date: 20131030
  Transmission Date: 20140711
  Serious: Yes (Death)
  Sender: FDA-Public Use
  Company Number: US-ROCHE-1209587

PATIENT
  Sex: Male

DRUGS (8)
  1. AVASTIN [Suspect]
     Indication: PROSTATE CANCER
     Route: 042
     Dates: start: 20091222
  2. TAXOTERE [Concomitant]
  3. PEPCID [Concomitant]
     Route: 042
     Dates: start: 20100218
  4. ALOXI [Concomitant]
     Route: 042
     Dates: start: 20100218
  5. DECADRON [Concomitant]
     Route: 002
     Dates: start: 20100218
  6. BENADRYL (UNITED STATES) [Concomitant]
     Route: 042
     Dates: start: 20100218
  7. TAXOL [Concomitant]
     Route: 042
     Dates: start: 20100218
  8. NEULASTA [Concomitant]
     Route: 058
     Dates: start: 20100218

REACTIONS (1)
  - Death [Fatal]
